FAERS Safety Report 23698820 (Version 1)
Quarter: 2024Q2

REPORT INFORMATION
  Report Type: Spontaneous
  Country: US (occurrence: None)
  Receive Date: 20240402
  Receipt Date: 20240402
  Transmission Date: 20240716
  Serious: Yes (Death, Hospitalization)
  Sender: FDA-Public Use
  Company Number: None

PATIENT
  Age: 79 Year
  Sex: Male
  Weight: 115 kg

DRUGS (3)
  1. ABIRATERONE ACETATE [Suspect]
     Active Substance: ABIRATERONE ACETATE
     Dates: end: 20200330
  2. CABAZITAXEL [Suspect]
     Active Substance: CABAZITAXEL
     Dates: end: 20200214
  3. PREDNISONE [Suspect]
     Active Substance: PREDNISONE
     Dates: end: 20200330

REACTIONS (1)
  - COVID-19 [None]

NARRATIVE: CASE EVENT DATE: 20200406
